FAERS Safety Report 5727735-2 (Version None)
Quarter: 2008Q2

REPORT INFORMATION
  Report Type: 
  Country: None (occurrence: None)
  Receive Date: 20080430
  Receipt Date: 20080414
  Transmission Date: 20081010
  Serious: No
  Sender: FDA-Public Use
  Company Number: 002#2#2008-00247

PATIENT
  Age: 36 Year
  Sex: Male
  Weight: 57 kg

DRUGS (8)
  1. NEUPRO [Suspect]
     Indication: PARKINSON'S DISEASE
     Dosage: 6MG/24H, 1 IN 1 D, TRANSDERMAL
     Route: 062
     Dates: start: 20080201
  2. STAVELO [Concomitant]
  3. SINEMET CR [Concomitant]
  4. LEXAPRO [Concomitant]
  5. VITAMIN CAP [Concomitant]
  6. COENZYME Q10 [Concomitant]
  7. OMEGA 3 [Concomitant]
  8. CREATINE [Concomitant]

REACTIONS (5)
  - APPLICATION SITE ERYTHEMA [None]
  - APPLICATION SITE IRRITATION [None]
  - APPLICATION SITE VESICLES [None]
  - INSOMNIA [None]
  - PRURITUS [None]
